FAERS Safety Report 21570299 (Version 2)
Quarter: 2022Q4

REPORT INFORMATION
  Report Type: Spontaneous
  Country: US (occurrence: US)
  Receive Date: 20221109
  Receipt Date: 20221209
  Transmission Date: 20230113
  Serious: No
  Sender: FDA-Public Use
  Company Number: US-PFIZER INC-2021412156

PATIENT
  Age: 13 Year
  Sex: Male

DRUGS (1)
  1. GENOTROPIN [Suspect]
     Active Substance: SOMATROPIN
     Dosage: 2.2 MG
     Dates: start: 20210127

REACTIONS (6)
  - Wrong technique in device usage process [Unknown]
  - Device issue [Unknown]
  - Device leakage [Unknown]
  - Incorrect dose administered [Unknown]
  - Device delivery system issue [Unknown]
  - Poor quality device used [Unknown]
